FAERS Safety Report 4358598-8 (Version None)
Quarter: 2004Q2

REPORT INFORMATION
  Report Type: 
  Country: None (occurrence: None)
  Receive Date: 20040514
  Receipt Date: 20040430
  Transmission Date: 20050107
  Serious: Yes (Hospitalization)
  Sender: FDA-Public Use
  Company Number: RB-698-2004

PATIENT
  Age: 25 Year
  Sex: Male

DRUGS (6)
  1. BUPRENORPHINE HYDROCHLORIDE [Suspect]
     Dosage: 0.4 MG UNK
     Dates: start: 20030518, end: 20030529
  2. DICLOFENAC SODIUM [Suspect]
     Dosage: 100 MG PO
     Route: 048
     Dates: start: 20030515, end: 20030529
  3. FAMOTIDINE [Suspect]
     Dosage: 20 MG PO
     Route: 048
     Dates: start: 20030517, end: 20030529
  4. BROTIZOLAM [Suspect]
     Dosage: PO
     Route: 048
     Dates: end: 20030529
  5. EPIRUBICIN HYDROCHLORIDE [Suspect]
  6. GELATIN [Suspect]
     Dosage: TP
     Route: 061

REACTIONS (3)
  - ARTHRALGIA [None]
  - ASTHENIA [None]
  - RHABDOMYOLYSIS [None]
